FAERS Safety Report 5299273-5 (Version None)
Quarter: 2007Q2

REPORT INFORMATION
  Report Type: 
  Country: None (occurrence: None)
  Receive Date: 20070417
  Receipt Date: 20070410
  Transmission Date: 20071010
  Serious: Yes (Hospitalization)
  Sender: FDA-Public Use
  Company Number: DE-ROCHE-492219

PATIENT
  Age: 82 Year
  Sex: Male

DRUGS (2)
  1. TIKLYD [Suspect]
     Indication: STENT PLACEMENT
     Dosage: INDICATION REPORTED AS 'DRUG ELUTING STENT'
     Route: 048
     Dates: end: 20070307
  2. ASPIRIN [Concomitant]
     Indication: STENT PLACEMENT
     Dosage: INDICATION REPORTED AS 'DRUG ELUTING STENT'
     Route: 048

REACTIONS (2)
  - DISEASE PROGRESSION [None]
  - LEUKOPENIA [None]
